FAERS Safety Report 4869094-3 (Version None)
Quarter: 2005Q4

REPORT INFORMATION
  Report Type: 
  Country: None (occurrence: None)
  Receive Date: 20051227
  Receipt Date: 20051215
  Transmission Date: 20060501
  Serious: Yes (Hospitalization)
  Sender: FDA-Public Use
  Company Number: ST-2005-008774

PATIENT
  Age: 65 Year
  Sex: Male

DRUGS (5)
  1. OLMETEC [Suspect]
     Indication: HYPERTENSION
     Dosage: 10 MG QD PO
     Route: 048
     Dates: start: 20050914, end: 20051025
  2. ASPIRIN [Concomitant]
  3. CYANOCOBALAMIN [Concomitant]
  4. GLUCOBAY [Concomitant]
  5. NOVOLIN 30R [Concomitant]

REACTIONS (3)
  - BLOOD PRESSURE INCREASED [None]
  - CONDITION AGGRAVATED [None]
  - RENAL DISORDER [None]
